FAERS Safety Report 17139412 (Version 1)
Quarter: 2019Q4

REPORT INFORMATION
  Report Type: Spontaneous
  Country: US (occurrence: US)
  Receive Date: 20191210
  Receipt Date: 20191210
  Transmission Date: 20200122
  Serious: No
  Sender: FDA-Public Use
  Company Number: None

PATIENT
  Age: 77 Year
  Sex: Male

DRUGS (1)
  1. AXICABTAGENE CILOLEUCEL [Suspect]
     Active Substance: AXICABTAGENE CILOLEUCEL

REACTIONS (13)
  - Decreased appetite [None]
  - Cytokine release syndrome [None]
  - Platelet transfusion [None]
  - Febrile neutropenia [None]
  - Fatigue [None]
  - Lymphocyte adoptive therapy [None]
  - Pancytopenia [None]
  - Mucosal inflammation [None]
  - Neurotoxicity [None]
  - Transfusion [None]
  - Metabolic encephalopathy [None]
  - Toxic encephalopathy [None]
  - Hypotension [None]

NARRATIVE: CASE EVENT DATE: 20191112
